FAERS Safety Report 7293181-6 (Version None)
Quarter: 2011Q1

REPORT INFORMATION
  Report Type: 
  Country: None (occurrence: None)
  Receive Date: 20110215
  Receipt Date: 20110204
  Transmission Date: 20110831
  Serious: Yes (Death)
  Sender: FDA-Public Use
  Company Number: JP-ACTELION-A-CH2011-44867

PATIENT
  Sex: Female
  Weight: 46 kg

DRUGS (22)
  1. ROSUVASTATIN CALCIUM [Concomitant]
  2. BISOPROLOL FUMARATE [Concomitant]
  3. EPALRESTAT [Concomitant]
  4. DEXTROMETHORPHAN HYDROBROMIDE [Concomitant]
  5. TRACLEER [Suspect]
     Dosage: 62.5 MG, QD
     Route: 048
     Dates: start: 20090629, end: 20090706
  6. WARFARIN POTASSIUM [Concomitant]
  7. TEPRENONE [Concomitant]
  8. CODEINE SULFATE [Concomitant]
  9. TRACLEER [Suspect]
     Indication: PULMONARY HYPERTENSION
     Dosage: 62.5 MG, BID
     Route: 048
     Dates: start: 20090707, end: 20090711
  10. MECOBALAMIN [Concomitant]
  11. MAGNESIUM OXIDE [Concomitant]
  12. BROTIZOLAM [Concomitant]
  13. SPIRONOLACTONE [Concomitant]
  14. LOSARTAN POTASSIUM [Concomitant]
  15. FLUTICASONE PROPIONATE [Concomitant]
  16. FUROSEMIDE [Concomitant]
  17. INSULIN GLARGINE [Concomitant]
  18. NICORANDIL [Concomitant]
  19. VOGLIBOSE [Concomitant]
  20. OXYGEN [Concomitant]
  21. ASPIRIN [Concomitant]
  22. TULOBUTEROL [Concomitant]

REACTIONS (3)
  - LIVER DISORDER [None]
  - DISEASE PROGRESSION [None]
  - PULMONARY FIBROSIS [None]
